FAERS Safety Report 16818277 (Version 3)
Quarter: 2020Q1

REPORT INFORMATION
  Report Type: Spontaneous
  Country: US (occurrence: US)
  Receive Date: 20190917
  Receipt Date: 20200128
  Transmission Date: 20200409
  Serious: No
  Sender: FDA-Public Use
  Company Number: US-JNJFOC-20190919326

PATIENT
  Age: 79 Year
  Sex: Male
  Weight: 96.61 kg

DRUGS (15)
  1. ZYTIGA [Suspect]
     Active Substance: ABIRATERONE ACETATE
     Indication: PRODUCT USED FOR UNKNOWN INDICATION
     Route: 048
     Dates: start: 20190606
  2. VITAMIN D3 [Concomitant]
     Active Substance: CHOLECALCIFEROL
     Indication: BONE CANCER
     Route: 065
     Dates: start: 201906
  3. MAGNESIUM                          /00123201/ [Concomitant]
     Active Substance: MAGNESIUM HYDROXIDE
     Route: 065
  4. LEVOTHYROXINE. [Concomitant]
     Active Substance: LEVOTHYROXINE
     Indication: THYROIDECTOMY
     Route: 065
     Dates: start: 1972
  5. TRAMADOL. [Concomitant]
     Active Substance: TRAMADOL
     Dosage: 1 OR 2 AS NEEDED
     Route: 065
  6. PREVAGEN [Concomitant]
     Active Substance: DIETARY SUPPLEMENT
     Route: 065
  7. PREDNISONE. [Concomitant]
     Active Substance: PREDNISONE
     Indication: BONE CANCER
     Route: 065
     Dates: start: 201906
  8. CALCIUM                            /00751520/ [Concomitant]
     Indication: BONE CANCER
     Route: 065
     Dates: start: 201906
  9. FLUOROURACIL. [Concomitant]
     Active Substance: FLUOROURACIL
     Dosage: AS NEEDED IN SCALP
     Route: 065
  10. ELIQUIS [Concomitant]
     Active Substance: APIXABAN
     Indication: PULMONARY EMBOLISM
     Route: 065
     Dates: start: 2016
  11. XGEVA [Concomitant]
     Active Substance: DENOSUMAB
     Indication: BONE CANCER
     Route: 065
     Dates: start: 201906
  12. BETAMETHASONE DIPROPIONATE. [Concomitant]
     Active Substance: BETAMETHASONE DIPROPIONATE
     Route: 061
  13. TRAVATAN [Concomitant]
     Active Substance: TRAVOPROST
     Dosage: 1 DROP EACH EYE NIGHTLY
  14. VITAMIN C [Concomitant]
     Active Substance: ASCORBIC ACID
     Route: 065
  15. VALACYCLOVIR [Concomitant]
     Active Substance: VALACYCLOVIR HYDROCHLORIDE
     Route: 065

REACTIONS (1)
  - Weight decreased [Recovered/Resolved]

NARRATIVE: CASE EVENT DATE: 201906
